FAERS Safety Report 18258186 (Version 1)
Quarter: 2020Q3

REPORT INFORMATION
  Report Type: Report from Study
  Country: BR (occurrence: BR)
  Receive Date: 20200911
  Receipt Date: 20200911
  Transmission Date: 20201103
  Serious: Yes (Other)
  Sender: FDA-Public Use
  Company Number: NVSC2020BR247779

PATIENT
  Age: 70 Year
  Sex: Male

DRUGS (1)
  1. REVOLADE [Suspect]
     Active Substance: ELTROMBOPAG
     Indication: IMMUNE THROMBOCYTOPENIA
     Dosage: 200 MG, QD
     Route: 065
     Dates: start: 202006

REACTIONS (10)
  - Metabolic syndrome [Unknown]
  - Obesity [Unknown]
  - Off label use [Unknown]
  - Acute myocardial infarction [Unknown]
  - Dyslipidaemia [Unknown]
  - Insulin resistance [Unknown]
  - Cardiovascular disorder [Unknown]
  - Angina pectoris [Unknown]
  - Hypertension [Unknown]
  - Depression [Unknown]
